FAERS Safety Report 21909065 (Version 1)
Quarter: 2023Q1

REPORT INFORMATION
  Report Type: Spontaneous
  Country: US (occurrence: None)
  Receive Date: 20230124
  Receipt Date: 20230124
  Transmission Date: 20230418
  Serious: Yes (Other)
  Sender: FDA-Public Use
  Company Number: None

PATIENT
  Age: 72 Year
  Sex: Female
  Weight: 68.85 kg

DRUGS (9)
  1. PROMETHAZINE HYDROCHLORIDE [Suspect]
     Active Substance: PROMETHAZINE HYDROCHLORIDE
     Indication: Cough
     Dosage: OTHER QUANTITY : 1 TEASPOON(S);?FREQUENCY : AT BEDTIME;?
     Route: 048
     Dates: start: 20230117, end: 20230117
  2. ACIPHEX [Concomitant]
     Active Substance: RABEPRAZOLE SODIUM
  3. ESTRADIOL [Concomitant]
     Active Substance: ESTRADIOL
  4. WELLBUTRIN [Concomitant]
     Active Substance: BUPROPION HYDROCHLORIDE
  5. HYDROCODONE [Concomitant]
     Active Substance: HYDROCODONE
  6. VITAMINS [Concomitant]
     Active Substance: VITAMINS
  7. VITAMIN C [Concomitant]
     Active Substance: ASCORBIC ACID
  8. VITAMIN D [Concomitant]
     Active Substance: VITAMIN D NOS
  9. CALCIUM [Concomitant]
     Active Substance: CALCIUM

REACTIONS (8)
  - Palpitations [None]
  - Limb discomfort [None]
  - Loss of consciousness [None]
  - Vertigo [None]
  - Feeling abnormal [None]
  - Hyperhidrosis [None]
  - Movement disorder [None]
  - Therapy cessation [None]

NARRATIVE: CASE EVENT DATE: 20230118
